FAERS Safety Report 4744810-X (Version None)
Quarter: 2005Q3

REPORT INFORMATION
  Report Type: 
  Country: None (occurrence: None)
  Receive Date: 20050815
  Receipt Date: 20050803
  Transmission Date: 20060218
  Serious: Yes (Other)
  Sender: FDA-Public Use
  Company Number: 200517003GDDC

PATIENT
  Age: 51 Year
  Sex: Male

DRUGS (3)
  1. ARAVA [Suspect]
     Indication: OSTEOARTHRITIS
     Route: 048
     Dates: start: 20011220
  2. ARAVA [Suspect]
     Indication: PSORIATIC ARTHROPATHY
     Route: 048
     Dates: start: 20011220
  3. METHOTREXATE [Concomitant]
     Route: 048
     Dates: start: 19970101

REACTIONS (4)
  - ALANINE AMINOTRANSFERASE INCREASED [None]
  - BLOOD LACTATE DEHYDROGENASE INCREASED [None]
  - INTERSTITIAL LUNG DISEASE [None]
  - LIVER FUNCTION TEST ABNORMAL [None]
